FAERS Safety Report 6303768-2 (Version None)
Quarter: 2009Q3

REPORT INFORMATION
  Report Type: 
  Country: None (occurrence: None)
  Receive Date: 20090805
  Receipt Date: 20090724
  Transmission Date: 20100115
  Serious: Yes (Other)
  Sender: FDA-Public Use
  Company Number: 09-001214

PATIENT
  Age: 45 Year
  Sex: Female
  Weight: 93.9 kg

DRUGS (3)
  1. LOESTRIN 24 FE [Suspect]
     Indication: CONTRACEPTION
     Dosage: 20/1000UG, QD, ORAL
     Route: 048
     Dates: start: 20070101
  2. LOESTRIN 24 FE [Suspect]
     Indication: MENSTRUAL CYCLE MANAGEMENT
     Dosage: 20/1000UG, QD, ORAL
     Route: 048
     Dates: start: 20070101
  3. CARBAMAZEPINE [Concomitant]

REACTIONS (2)
  - CONVULSION [None]
  - HEAD INJURY [None]
